FAERS Safety Report 7640861-6 (Version None)
Quarter: 2011Q3

REPORT INFORMATION
  Report Type: 
  Country: None (occurrence: None)
  Receive Date: 20110721
  Receipt Date: 20110714
  Transmission Date: 20111222
  Serious: Yes (Other)
  Sender: FDA-Public Use
  Company Number: 2011SP033326

PATIENT
  Sex: Male

DRUGS (2)
  1. MOMETASONE FUROATE [Suspect]
     Indication: ASTHMA
  2. MOMETASONE FUROATE [Suspect]
     Indication: CHRONIC OBSTRUCTIVE PULMONARY DISEASE

REACTIONS (4)
  - CHOKING [None]
  - FATIGUE [None]
  - OROPHARYNGEAL PAIN [None]
  - FOREIGN BODY ASPIRATION [None]
